FAERS Safety Report 14248585 (Version 2)
Quarter: 2018Q1

REPORT INFORMATION
  Report Type: Spontaneous
  Country: GB (occurrence: GB)
  Receive Date: 20171204
  Receipt Date: 20180314
  Transmission Date: 20180508
  Serious: Yes (Disabling, Other)
  Sender: FDA-Public Use
  Company Number: GB-BAYER-2017-221767

PATIENT
  Age: 29 Year
  Sex: Male
  Weight: 86 kg

DRUGS (5)
  1. REVAXIS [Concomitant]
     Active Substance: DIPHTHERIA AND TETANUS TOXOIDS AND POLIOVIRUS VACCINE ANTIGENS
     Dosage: UNK
     Dates: start: 20170814
  2. JAPANESE ENCEPHALITIS VIRUS VACCINE INACTIVATED [Concomitant]
     Active Substance: JAPANESE ENCEPHALITIS VIRUS STRAIN NAKAYAMA-NIH ANTIGEN (FORMALDEHYDE INACTIVATED)
     Dosage: UNK
     Dates: start: 20170814
  3. JAPANESE ENCEPHALITIS VIRUS VACCINE INACTIVATED [Concomitant]
     Active Substance: JAPANESE ENCEPHALITIS VIRUS STRAIN NAKAYAMA-NIH ANTIGEN (FORMALDEHYDE INACTIVATED)
     Indication: FOREIGN TRAVEL
     Dosage: UNK
     Dates: start: 20170911
  4. CIPROXIN 500 MG [Suspect]
     Active Substance: CIPROFLOXACIN
     Indication: PROSTATITIS
     Dosage: 500 MG, BID
     Route: 048
     Dates: start: 20171024, end: 201710
  5. TYPHOID [Concomitant]
     Active Substance: TYPHOID VACCINE
     Indication: FOREIGN TRAVEL
     Dosage: UNK
     Dates: start: 20170911

REACTIONS (25)
  - Rectal haemorrhage [None]
  - Tinnitus [Recovered/Resolved with Sequelae]
  - Palpitations [Recovered/Resolved]
  - Abdominal pain [None]
  - Asthenia [None]
  - Diplopia [Recovered/Resolved with Sequelae]
  - Vasculitic rash [Recovering/Resolving]
  - Chest pain [None]
  - Haematuria [None]
  - Myalgia [Not Recovered/Not Resolved]
  - Tendon pain [Not Recovered/Not Resolved]
  - Bladder pain [None]
  - Groin pain [None]
  - Feeling abnormal [None]
  - Pain in extremity [None]
  - Impaired reasoning [None]
  - Arthralgia [Not Recovered/Not Resolved]
  - Paraesthesia [None]
  - Joint noise [None]
  - Limb discomfort [None]
  - Dyspnoea [None]
  - Dizziness [Recovered/Resolved with Sequelae]
  - Fatigue [None]
  - Tremor [None]
  - Aphasia [None]

NARRATIVE: CASE EVENT DATE: 20171028
